FAERS Safety Report 8205956-7 (Version None)
Quarter: 2012Q1

REPORT INFORMATION
  Report Type: 
  Country: None (occurrence: None)
  Receive Date: 20120313
  Receipt Date: 20120306
  Transmission Date: 20120608
  Serious: Yes (Other)
  Sender: FDA-Public Use
  Company Number: JP-VALEANT-2012VX001063

PATIENT
  Age: 74 Year
  Sex: Male

DRUGS (4)
  1. CISPLATIN [Suspect]
     Route: 065
     Dates: start: 20060901
  2. FLUOROURACIL [Suspect]
     Route: 065
     Dates: start: 20060901
  3. TAXOTERE [Suspect]
     Route: 065
     Dates: end: 20080401
  4. TAXOTERE [Suspect]
     Route: 065
     Dates: start: 20071201

REACTIONS (4)
  - PNEUMONIA [None]
  - NEUTROPHIL COUNT DECREASED [None]
  - METASTASIS [None]
  - DECREASED APPETITE [None]
